FAERS Safety Report 21293988 (Version 1)
Quarter: 2022Q3

REPORT INFORMATION
  Report Type: Spontaneous
  Country: AU (occurrence: AU)
  Receive Date: 20220905
  Receipt Date: 20220905
  Transmission Date: 20221027
  Serious: Yes (Hospitalization, Other)
  Sender: FDA-Public Use
  Company Number: AU-GLAXOSMITHKLINE-AU2022APC123829

PATIENT

DRUGS (2)
  1. VENTOLIN [Suspect]
     Active Substance: ALBUTEROL SULFATE
     Indication: Product used for unknown indication
     Dosage: 400 UG
  2. TRELEGY ELLIPTA [Suspect]
     Active Substance: FLUTICASONE FUROATE\UMECLIDINIUM BROMIDE\VILANTEROL TRIFENATATE
     Indication: Product used for unknown indication
     Dosage: UNK

REACTIONS (9)
  - Dyspnoea [Recovering/Resolving]
  - Hyperdynamic left ventricle [Unknown]
  - Chest discomfort [Recovering/Resolving]
  - Wheezing [Recovering/Resolving]
  - PCO2 abnormal [Unknown]
  - Respiratory rate increased [Unknown]
  - pH body fluid abnormal [Unknown]
  - Spirometry abnormal [Unknown]
  - Blood bicarbonate increased [Unknown]
